FAERS Safety Report 10400461 (Version 1)
Quarter: 2014Q3

REPORT INFORMATION
  Report Type: Spontaneous
  Country: US (occurrence: US)
  Receive Date: 20140821
  Receipt Date: 20140821
  Transmission Date: 20150326
  Serious: No
  Sender: FDA-Public Use
  Company Number: US-ASTRAZENECA-2013SE89181

PATIENT
  Age: 70 Year
  Sex: Female
  Weight: 130.5 kg

DRUGS (2)
  1. SYMBICORT [Suspect]
     Active Substance: BUDESONIDE\FORMOTEROL FUMARATE DIHYDRATE
     Indication: ASTHMA
     Dosage: 160/4.5, TWO PUFFS BID
     Route: 055
     Dates: start: 2012
  2. SYMBICORT [Suspect]
     Active Substance: BUDESONIDE\FORMOTEROL FUMARATE DIHYDRATE
     Indication: CHRONIC OBSTRUCTIVE PULMONARY DISEASE
     Dosage: 160/4.5, TWO PUFFS BID
     Route: 055
     Dates: start: 2012

REACTIONS (5)
  - Device misuse [Unknown]
  - Circumstance or information capable of leading to medication error [Unknown]
  - Oedema peripheral [Not Recovered/Not Resolved]
  - Off label use [Not Recovered/Not Resolved]
  - Weight fluctuation [Not Recovered/Not Resolved]

NARRATIVE: CASE EVENT DATE: 2013
